FAERS Safety Report 7356641-5 (Version None)
Quarter: 2011Q1

REPORT INFORMATION
  Report Type: 
  Country: None (occurrence: None)
  Receive Date: 20110316
  Receipt Date: 20110304
  Transmission Date: 20110831
  Serious: Yes (Hospitalization)
  Sender: FDA-Public Use
  Company Number: PHHY2011DE19688

PATIENT
  Age: 34 Year
  Sex: Female
  Weight: 85 kg

DRUGS (5)
  1. FLUCONAZOLE [Suspect]
     Indication: BACTERIAL INFECTION
     Dosage: 50 MG, QD
     Route: 048
  2. CEFUROXIME [Suspect]
     Indication: BACTERIAL INFECTION
     Dosage: 250 MG, BID
     Route: 048
  3. COMBIVIR [Concomitant]
     Indication: HIV INFECTION
     Dosage: 450 MG, BID
     Route: 048
  4. KALETRA [Concomitant]
     Indication: HIV INFECTION
     Dosage: 125 MG, QD
     Route: 048
  5. AZITHROMYCIN [Suspect]
     Indication: BACTERIAL INFECTION
     Dosage: 500 MG, QD
     Route: 048

REACTIONS (17)
  - PYREXIA [None]
  - PAIN [None]
  - SINUS TACHYCARDIA [None]
  - DRY MOUTH [None]
  - PROTEIN TOTAL INCREASED [None]
  - CONJUNCTIVAL HYPERAEMIA [None]
  - C-REACTIVE PROTEIN INCREASED [None]
  - TOXIC EPIDERMAL NECROLYSIS [None]
  - FLAVIVIRUS TEST POSITIVE [None]
  - GLOSSITIS [None]
  - RASH GENERALISED [None]
  - LIP DRY [None]
  - DEHYDRATION [None]
  - DENGUE FEVER [None]
  - BLISTER [None]
  - MALAISE [None]
  - BLOOD LACTATE DEHYDROGENASE INCREASED [None]
